FAERS Safety Report 19936718 (Version 1)
Quarter: 2021Q4

REPORT INFORMATION
  Report Type: Spontaneous
  Country: CN (occurrence: CN)
  Receive Date: 20211008
  Receipt Date: 20211008
  Transmission Date: 20220303
  Serious: Yes (Other)
  Sender: FDA-Public Use
  Company Number: CN-BAXTER-2021BAX031311

PATIENT
  Age: 49 Year
  Sex: Female
  Weight: 50 kg

DRUGS (4)
  1. CYCLOPHOSPHAMIDE [Suspect]
     Active Substance: CYCLOPHOSPHAMIDE
     Indication: Breast cancer female
     Dosage: CYCLOPHOSPHAMIDE FOR INJECTION 0.8G + NS 500ML
     Route: 041
     Dates: start: 20210909, end: 20210909
  2. SODIUM CHLORIDE [Suspect]
     Active Substance: SODIUM CHLORIDE
     Indication: Medication dilution
     Dosage: CYCLOPHOSPHAMIDE FOR INJECTION 0.8G + NS 500ML
     Route: 041
     Dates: start: 20210909, end: 20210909
  3. DEXTROSE [Suspect]
     Active Substance: DEXTROSE
     Indication: Medication dilution
     Dosage: PIRARUBICIN HYDROCHLORIDE FOR INJECTION 60 MG + GS 100ML
     Route: 041
     Dates: start: 20210909, end: 20210909
  4. PIRARUBICIN HYDROCHLORIDE [Suspect]
     Active Substance: PIRARUBICIN HYDROCHLORIDE
     Indication: Breast cancer female
     Dosage: PIRARUBICIN HYDROCHLORIDE FOR INJECTION 60 MG + GS 100ML
     Route: 041
     Dates: start: 20210909, end: 20210909

REACTIONS (1)
  - Myelosuppression [Recovering/Resolving]

NARRATIVE: CASE EVENT DATE: 20210913
